FAERS Safety Report 7783425-6 (Version None)
Quarter: 2011Q3

REPORT INFORMATION
  Report Type: 
  Country: None (occurrence: None)
  Receive Date: 20110928
  Receipt Date: 20110928
  Transmission Date: 20111222
  Serious: Yes (Other)
  Sender: FDA-Public Use
  Company Number: None

PATIENT
  Age: 57 Year
  Sex: Male
  Weight: 79.378 kg

DRUGS (1)
  1. FINASTERIDE [Suspect]
     Indication: PROSTATOMEGALY
     Dosage: 5MG
     Route: 048
     Dates: start: 20110807, end: 20110927

REACTIONS (4)
  - LIBIDO DECREASED [None]
  - SEXUAL DYSFUNCTION [None]
  - ERECTILE DYSFUNCTION [None]
  - EJACULATION FAILURE [None]
